FAERS Safety Report 20649503 (Version 1)
Quarter: 2022Q1

REPORT INFORMATION
  Report Type: Spontaneous
  Country: US (occurrence: None)
  Receive Date: 20220329
  Receipt Date: 20220329
  Transmission Date: 20220424
  Serious: No
  Sender: FDA-Public Use
  Company Number: None

PATIENT
  Age: 38 Year
  Sex: Male

DRUGS (1)
  1. KESIMPTA [Suspect]
     Active Substance: OFATUMUMAB
     Indication: Multiple sclerosis
     Dosage: OTHER FREQUENCY : WEEK 0,1,2;?
     Route: 058
     Dates: start: 20220322

REACTIONS (4)
  - Anxiety [None]
  - Hyperhidrosis [None]
  - Tremor [None]
  - Movement disorder [None]

NARRATIVE: CASE EVENT DATE: 20220322
